FAERS Safety Report 20677036 (Version 2)
Quarter: 2022Q2

REPORT INFORMATION
  Report Type: Spontaneous
  Country: US (occurrence: US)
  Receive Date: 20220406
  Receipt Date: 20220428
  Transmission Date: 20220720
  Serious: Yes (Other)
  Sender: FDA-Public Use
  Company Number: US-JNJFOC-20220404378

PATIENT
  Age: 37 Year
  Sex: Male
  Weight: 74.456 kg

DRUGS (5)
  1. INVEGA SUSTENNA [Suspect]
     Active Substance: PALIPERIDONE PALMITATE
     Indication: Schizophrenia
     Route: 030
     Dates: start: 2014, end: 2022
  2. INVEGA SUSTENNA [Suspect]
     Active Substance: PALIPERIDONE PALMITATE
  3. INVEGA SUSTENNA [Suspect]
     Active Substance: PALIPERIDONE PALMITATE
  4. INGREZZA [Suspect]
     Active Substance: VALBENAZINE
     Indication: Tardive dyskinesia
     Dosage: QD
     Route: 048
     Dates: start: 20220321, end: 20220322
  5. LITHIUM [Concomitant]
     Active Substance: LITHIUM
     Indication: Drug therapy
     Dosage: 300MG IN AM AND 600MG IN PM.

REACTIONS (4)
  - Tardive dyskinesia [Recovered/Resolved]
  - Eye operation [Unknown]
  - Incorrect route of product administration [Unknown]
  - Off label use [Unknown]
